FAERS Safety Report 16148986 (Version 1)
Quarter: 2019Q2

REPORT INFORMATION
  Report Type: Spontaneous
  Country: CN (occurrence: CN)
  Receive Date: 20190402
  Receipt Date: 20190402
  Transmission Date: 20190711
  Serious: Yes (Other)
  Sender: FDA-Public Use
  Company Number: CN-BAXTER-2019BAX006310

PATIENT
  Age: 48 Year
  Sex: Female
  Weight: 62 kg

DRUGS (12)
  1. 0.9% SODIUM CHLORIDE INJECTION [Suspect]
     Active Substance: SODIUM CHLORIDE
     Dosage: ENDOXAN + 0.9 % SODIUM CHLORIDE
     Route: 041
  2. 0.9% SODIUM CHLORIDE INJECTION [Suspect]
     Active Substance: SODIUM CHLORIDE
     Indication: MEDICATION DILUTION
     Dosage: JIEBAISHU 30 MG + 0.9% SODIUM CHLORIDE 500 ML
     Route: 041
     Dates: start: 20190227, end: 20190228
  3. HUYOU [VINDESINE SULFATE] [Suspect]
     Active Substance: VINDESINE SULFATE
     Indication: LUNG NEOPLASM MALIGNANT
     Dosage: HUYOU INJECTION 4 MG + 0.9 % SODIUM CHLORIDE INJECTION 100 ML
     Route: 041
     Dates: start: 20190227, end: 20190228
  4. JIEBAISHU [Suspect]
     Active Substance: NEDAPLATIN
     Indication: LUNG NEOPLASM MALIGNANT
     Dosage: JIEBAISHU 30 MG + 0.9% SODIUM CHLORIDE INJECTION 500 ML
     Route: 041
     Dates: start: 20190227, end: 20190228
  5. 0.9% SODIUM CHLORIDE INJECTION [Suspect]
     Active Substance: SODIUM CHLORIDE
     Dosage: JIEBAISHU + 0.9% SODIUM CHLORIDE
     Route: 041
  6. ENDOXAN [Suspect]
     Active Substance: CYCLOPHOSPHAMIDE
     Dosage: ENDOXAN + 0.9% SODIUM CHLORIDE
     Route: 041
  7. JIEBAISHU [Suspect]
     Active Substance: NEDAPLATIN
     Dosage: JIEBAISHU + 0.9% SODIUM CHLORIDE
     Route: 041
  8. 0.9% SODIUM CHLORIDE INJECTION [Suspect]
     Active Substance: SODIUM CHLORIDE
     Indication: MEDICATION DILUTION
     Dosage: HUYOU INJECTION  4 MG + 0.9 % SODIUM CHLORIDE 100 ML
     Route: 041
     Dates: start: 20190227, end: 20190228
  9. ENDOXAN [Suspect]
     Active Substance: CYCLOPHOSPHAMIDE
     Indication: LUNG NEOPLASM MALIGNANT
     Dosage: ENDOXAN 0.8 G + 0.9% SODIUM CHLORIDE 100 ML
     Route: 041
     Dates: start: 20190227, end: 20190228
  10. 0.9% SODIUM CHLORIDE INJECTION [Suspect]
     Active Substance: SODIUM CHLORIDE
     Dosage: ENDOXAN 0.8 G + 0.9 % SODIUM CHLORIDE 100 ML
     Route: 041
     Dates: start: 20190227, end: 20190228
  11. 0.9% SODIUM CHLORIDE INJECTION [Suspect]
     Active Substance: SODIUM CHLORIDE
     Dosage: HUYOU INJECTION + 0.9 % SODIUM CHLORIDE
     Route: 041
  12. HUYOU [VINDESINE SULFATE] [Suspect]
     Active Substance: VINDESINE SULFATE
     Dosage: HUYOU INJECTION + 0.9 % SODIUM CHLORIDE INJECTION
     Route: 041

REACTIONS (4)
  - Nausea [Recovering/Resolving]
  - Insomnia [Unknown]
  - Vomiting [Recovering/Resolving]
  - Abdominal discomfort [Unknown]

NARRATIVE: CASE EVENT DATE: 20190228
